FAERS Safety Report 5705516-3 (Version None)
Quarter: 2008Q2

REPORT INFORMATION
  Report Type: 
  Country: None (occurrence: None)
  Receive Date: 20080415
  Receipt Date: 20080403
  Transmission Date: 20081010
  Serious: Yes (Life-Threatening)
  Sender: FDA-Public Use
  Company Number: GB-WYE-H03581908

PATIENT
  Age: 65 Year
  Sex: Male

DRUGS (5)
  1. AMIODARONE HCL [Suspect]
     Indication: ATRIAL FLUTTER
     Route: 042
     Dates: start: 20080330, end: 20080330
  2. METOCLOPRAMIDE [Concomitant]
  3. HEPARIN-FRACTION, SODIUM SALT [Concomitant]
  4. BUSCOPAN [Concomitant]
  5. CYCLIZINE [Concomitant]

REACTIONS (7)
  - CARDIAC ARREST [None]
  - CIRCULATORY COLLAPSE [None]
  - HEPATITIS FULMINANT [None]
  - HYPERKALAEMIA [None]
  - HYPOGLYCAEMIA [None]
  - RENAL FAILURE ACUTE [None]
  - THROMBOCYTOPENIA [None]
